FAERS Safety Report 4329933-1 (Version None)
Quarter: 2004Q1

REPORT INFORMATION
  Report Type: 
  Country: None (occurrence: None)
  Receive Date: 20040329
  Receipt Date: 20040317
  Transmission Date: 20041129
  Serious: No
  Sender: FDA-Public Use
  Company Number: 2004UW05115

PATIENT
  Age: 82 Year
  Sex: Female

DRUGS (8)
  1. ARIMIDEX [Suspect]
     Dosage: 1 MG DAILY PO
     Route: 048
  2. CAPTOPRIL [Suspect]
  3. COMBIVENT [Concomitant]
  4. METAZOLONE [Concomitant]
  5. MIRTAZAPINE [Concomitant]
  6. FUROSEMIDE [Suspect]
  7. VERAPAMIL [Concomitant]
  8. WARFARIN SODIUM [Concomitant]

REACTIONS (1)
  - RENAL FAILURE ACUTE [None]
